FAERS Safety Report 6527426-4 (Version None)
Quarter: 2010Q1

REPORT INFORMATION
  Report Type: 
  Country: None (occurrence: None)
  Receive Date: 20100104
  Receipt Date: 20100104
  Transmission Date: 20100710
  Serious: Yes (Hospitalization)
  Sender: FDA-Public Use
  Company Number: None

PATIENT
  Age: 46 Year
  Sex: Female
  Weight: 72.5755 kg

DRUGS (2)
  1. PHENYTOIN [Suspect]
     Indication: GRAND MAL CONVULSION
     Dosage: 300 MG 1X/DAY PO
     Route: 048
     Dates: start: 20081120, end: 20091108
  2. DILANTIN [Suspect]
     Dosage: 400 MG 1X/DAY PO
     Route: 048

REACTIONS (4)
  - ANTICONVULSANT DRUG LEVEL DECREASED [None]
  - GRAND MAL CONVULSION [None]
  - HUMERUS FRACTURE [None]
  - INHIBITORY DRUG INTERACTION [None]
